FAERS Safety Report 13582945 (Version 2)
Quarter: 2017Q2

REPORT INFORMATION
  Report Type: Spontaneous
  Country: IT (occurrence: IT)
  Receive Date: 20170525
  Receipt Date: 20170601
  Transmission Date: 20170830
  Serious: Yes (Hospitalization)
  Sender: FDA-Public Use
  Company Number: IT-ABBVIE-17P-083-1988161-00

PATIENT
  Age: 8 Month
  Sex: Female

DRUGS (2)
  1. DEPAKIN [Suspect]
     Active Substance: VALPROATE SODIUM
     Indication: GENERALISED TONIC-CLONIC SEIZURE
     Route: 048
     Dates: start: 20170101, end: 20170427
  2. DEPAKIN [Suspect]
     Active Substance: VALPROATE SODIUM
     Indication: GENERALISED TONIC-CLONIC SEIZURE

REACTIONS (3)
  - Tonic clonic movements [Recovering/Resolving]
  - Medication error [Unknown]
  - Staring [Recovering/Resolving]

NARRATIVE: CASE EVENT DATE: 20170427
